FAERS Safety Report 21037136 (Version 1)
Quarter: 2022Q3

REPORT INFORMATION
  Report Type: Spontaneous
  Country: US (occurrence: US)
  Receive Date: 20220703
  Receipt Date: 20220703
  Transmission Date: 20221027
  Serious: Yes (Life-Threatening, Hospitalization)
  Sender: FDA-Public Use
  Company Number: US-TEVA-2022-US-2051131

PATIENT
  Age: 39 Year
  Sex: Female
  Weight: 63.6 kg

DRUGS (6)
  1. AMRIX [Suspect]
     Active Substance: CYCLOBENZAPRINE HYDROCHLORIDE
     Indication: Insomnia
     Route: 048
     Dates: start: 20210111
  2. AMRIX [Suspect]
     Active Substance: CYCLOBENZAPRINE HYDROCHLORIDE
     Route: 048
     Dates: start: 20210309, end: 20210309
  3. XANAX [Suspect]
     Active Substance: ALPRAZOLAM
     Indication: Hot flush
     Route: 048
     Dates: start: 202103, end: 20210312
  4. XANAX [Suspect]
     Active Substance: ALPRAZOLAM
     Route: 048
     Dates: start: 20210309, end: 20210309
  5. ZOLOFT [Suspect]
     Active Substance: SERTRALINE HYDROCHLORIDE
     Indication: Anxiety
     Dosage: 50 MILLIGRAM DAILY;
     Route: 048
     Dates: start: 202102
  6. ZOLOFT [Suspect]
     Active Substance: SERTRALINE HYDROCHLORIDE
     Route: 048
     Dates: start: 20210309, end: 20210309

REACTIONS (2)
  - Overdose [Unknown]
  - Suicide attempt [Unknown]

NARRATIVE: CASE EVENT DATE: 20210309
